FAERS Safety Report 4610020-X (Version None)
Quarter: 2005Q1

REPORT INFORMATION
  Report Type: 
  Country: None (occurrence: None)
  Receive Date: 20050316
  Receipt Date: 20050309
  Transmission Date: 20050727
  Serious: Yes (Hospitalization, Disabling)
  Sender: FDA-Public Use
  Company Number: US-JNJFOC-20050202611

PATIENT
  Sex: Male
  Weight: 83.92 kg

DRUGS (1)
  1. LEVAQUIN [Suspect]
     Indication: CYSTOSCOPY

REACTIONS (2)
  - CEREBROVASCULAR ACCIDENT [None]
  - HYPERSENSITIVITY [None]
